FAERS Safety Report 10697578 (Version 1)
Quarter: 2014Q4

REPORT INFORMATION
  Report Type: Spontaneous
  Country: US (occurrence: None)
  Receive Date: 20141224
  Receipt Date: 20141224
  Transmission Date: 20150529
  Serious: Yes (Other)
  Sender: FDA-Public Use
  Company Number: 2014US-85964

PATIENT
  Age: 29 Year
  Sex: Female

DRUGS (2)
  1. ALBUTEROL SULFATE (ALBUTEROL SULFATE) UNKNOWN [Concomitant]
  2. ABSORICA [Suspect]
     Active Substance: ISOTRETINOIN
     Indication: ACNE
     Dosage: 20 MG, DAILY, UNKNOWN
     Dates: start: 20140904

REACTIONS (3)
  - Rectal haemorrhage [None]
  - Lip dry [None]
  - Constipation [None]
